FAERS Safety Report 23895201 (Version 1)
Quarter: 2024Q2

REPORT INFORMATION
  Report Type: Spontaneous
  Country: US (occurrence: US)
  Receive Date: 20240524
  Receipt Date: 20240524
  Transmission Date: 20240717
  Serious: No
  Sender: FDA-Public Use
  Company Number: US-BAYER-2024A075780

PATIENT
  Age: 81 Year
  Sex: Female

DRUGS (1)
  1. ALEVE [Suspect]
     Active Substance: NAPROXEN SODIUM
     Indication: Pain in extremity
     Dosage: 2 TABLETS WITH BREAKFAST AND 2 TABLETS WITH DINNER
     Route: 048
     Dates: end: 202405

REACTIONS (1)
  - Constipation [Not Recovered/Not Resolved]
